FAERS Safety Report 8389653-3 (Version None)
Quarter: 2012Q2

REPORT INFORMATION
  Report Type: 
  Country: None (occurrence: None)
  Receive Date: 20120528
  Receipt Date: 20120514
  Transmission Date: 20120825
  Serious: Yes (Hospitalization)
  Sender: FDA-Public Use
  Company Number: FR-ROCHE-1069190

PATIENT
  Sex: Male

DRUGS (6)
  1. ROCEPHIN [Suspect]
     Indication: OSTEOMYELITIS
     Route: 042
     Dates: start: 20120201, end: 20120408
  2. BACTRIM [Suspect]
     Route: 048
     Dates: start: 20120101
  3. VINCRISTINE [Suspect]
     Indication: T-CELL TYPE ACUTE LEUKAEMIA
     Route: 042
     Dates: start: 20110614, end: 20120227
  4. BACTRIM [Suspect]
     Indication: ANTIFUNGAL PROPHYLAXIS
     Route: 048
     Dates: start: 20110614, end: 20120312
  5. KIDROLASE [Suspect]
     Indication: T-CELL TYPE ACUTE LEUKAEMIA
     Route: 030
     Dates: start: 20110615, end: 20120227
  6. DAUNORUBICIN HCL [Suspect]
     Indication: T-CELL TYPE ACUTE LEUKAEMIA
     Route: 042
     Dates: start: 20110614, end: 20120227

REACTIONS (1)
  - CYTOLYTIC HEPATITIS [None]
